FAERS Safety Report 6395907-2 (Version None)
Quarter: 2009Q4

REPORT INFORMATION
  Report Type: 
  Country: None (occurrence: None)
  Receive Date: 20091009
  Receipt Date: 20090826
  Transmission Date: 20100525
  Serious: No
  Sender: FDA-Public Use
  Company Number: A0804576A

PATIENT
  Age: 51 Year
  Sex: Female

DRUGS (13)
  1. TYKERB [Suspect]
     Indication: BREAST CANCER
     Dosage: 5TAB PER DAY
     Route: 048
     Dates: start: 20090721
  2. XELODA [Suspect]
  3. NEXIUM [Concomitant]
  4. LORTAB [Concomitant]
  5. VITAMIN D [Concomitant]
  6. CALCIUM [Concomitant]
  7. NEURONTIN [Concomitant]
  8. OXYCONTIN [Concomitant]
  9. ZANAFLEX [Concomitant]
  10. EFFEXOR [Concomitant]
  11. JANUVIA [Concomitant]
  12. BENADRYL [Concomitant]
  13. PREDNISONE [Concomitant]

REACTIONS (2)
  - DIARRHOEA [None]
  - HYPOTENSION [None]
